FAERS Safety Report 7142831-3 (Version None)
Quarter: 2010Q4

REPORT INFORMATION
  Report Type: 
  Country: None (occurrence: None)
  Receive Date: 20101207
  Receipt Date: 20101115
  Transmission Date: 20110411
  Serious: Yes (Hospitalization, Other)
  Sender: FDA-Public Use
  Company Number: DE-AMGEN-DEUSP2010004400

PATIENT

DRUGS (8)
  1. NEULASTA [Suspect]
     Indication: CHEMOTHERAPY
     Dosage: 6 MG, UNK
     Route: 058
     Dates: start: 20100531
  2. NEULASTA [Suspect]
     Dosage: 6 MG, UNK
     Route: 058
     Dates: start: 20100615
  3. NEULASTA [Suspect]
     Dosage: 6 MG, UNK
     Route: 058
     Dates: start: 20100702
  4. NEULASTA [Suspect]
     Dosage: 6 MG, UNK
     Route: 058
     Dates: start: 20100718
  5. EPIRUBICIN [Concomitant]
  6. TAXOL [Concomitant]
     Dosage: 260 MG, UNK
  7. TAXOL [Concomitant]
     Dosage: 250 MG, UNK
  8. CYCLOPHOSPHAMIDE [Concomitant]
     Dosage: 3000 MG, UNK

REACTIONS (5)
  - BLOOD COUNT ABNORMAL [None]
  - FEBRILE NEUTROPENIA [None]
  - GRANULOCYTOPENIA [None]
  - INFECTION [None]
  - THERAPEUTIC RESPONSE DECREASED [None]
